FAERS Safety Report 4963065-4 (Version None)
Quarter: 2006Q2

REPORT INFORMATION
  Report Type: 
  Country: None (occurrence: None)
  Receive Date: 20060405
  Receipt Date: 20060329
  Transmission Date: 20061013
  Serious: Yes (Other)
  Sender: FDA-Public Use
  Company Number: US-GLAXOSMITHKLINE-A0599554A

PATIENT
  Age: 40 Year
  Sex: Female

DRUGS (5)
  1. LAMICTAL [Suspect]
     Indication: EPILEPSY
     Dosage: 75MG THREE TIMES PER DAY
     Route: 048
     Dates: start: 19990101
  2. LAMICTAL [Suspect]
     Route: 048
  3. DILANTIN [Suspect]
     Indication: CONVULSION
     Route: 065
  4. MYSOLINE [Concomitant]
  5. TEGRETOL [Concomitant]

REACTIONS (5)
  - ANTICONVULSANT DRUG LEVEL ABOVE THERAPEUTIC [None]
  - CONVULSION [None]
  - OVARIAN CYST [None]
  - RED BLOOD CELL COUNT DECREASED [None]
  - WHITE BLOOD CELL COUNT DECREASED [None]
